FAERS Safety Report 6962203-1 (Version None)
Quarter: 2010Q3

REPORT INFORMATION
  Report Type: 
  Country: None (occurrence: None)
  Receive Date: 20100830
  Receipt Date: 20100816
  Transmission Date: 20110219
  Serious: Yes (Other)
  Sender: FDA-Public Use
  Company Number: IN-ACCORD-005911

PATIENT
  Age: 18 Year
  Sex: Male

DRUGS (4)
  1. MYCOPHENOLATE MOFETIL [Suspect]
     Indication: RENAL TRANSPLANT
     Dosage: 1750.00-MG-1.0DA YS
  2. VALPROATE SODIUM [Suspect]
     Indication: AFFECTIVE DISORDER
  3. PREDNISOLONE [Concomitant]
  4. TACROLIMUS [Concomitant]

REACTIONS (2)
  - AFFECTIVE DISORDER [None]
  - DRUG INTERACTION [None]
